FAERS Safety Report 6735278-2 (Version None)
Quarter: 2010Q2

REPORT INFORMATION
  Report Type: 
  Country: None (occurrence: None)
  Receive Date: 20100521
  Receipt Date: 20100510
  Transmission Date: 20101027
  Serious: Yes (Other)
  Sender: FDA-Public Use
  Company Number: CA-JNJFOC-20100505017

PATIENT
  Sex: Female
  Weight: 83.5 kg

DRUGS (12)
  1. REMICADE [Suspect]
     Indication: RHEUMATOID ARTHRITIS
     Route: 042
  2. REMICADE [Suspect]
     Route: 042
  3. METFORMIN HYDROCHLORIDE [Concomitant]
  4. FOLIC ACID [Concomitant]
  5. OMEPRAZOLE [Concomitant]
  6. HYDROXYCHLOROQUINE SULFATE [Concomitant]
  7. RAMIPRIL [Concomitant]
  8. CRESTOR [Concomitant]
  9. BIOTENE [Concomitant]
     Dosage: PRN
  10. VENLAFAXINE [Concomitant]
  11. CELEBREX [Concomitant]
  12. CYCLOBENZAPRINE [Concomitant]

REACTIONS (1)
  - ULCERATIVE KERATITIS [None]
